FAERS Safety Report 8411687-0 (Version None)
Quarter: 2012Q2

REPORT INFORMATION
  Report Type: 
  Country: None (occurrence: None)
  Receive Date: 20120531
  Receipt Date: 20120531
  Transmission Date: 20120825
  Serious: Yes (Life-Threatening, Hospitalization)
  Sender: FDA-Public Use
  Company Number: None

PATIENT
  Sex: Male
  Weight: 77.1115 kg

DRUGS (3)
  1. PRADAXA [Suspect]
  2. MULTAQ [Suspect]
     Dosage: 2 PER DAY MULTAQ
     Dates: start: 20120301
  3. VENTOLIN [Suspect]
     Indication: ATRIAL FIBRILLATION
     Dosage: 4 PER DAY PRADAXA
     Dates: start: 20111001

REACTIONS (3)
  - HAEMOPTYSIS [None]
  - DRUG INTOLERANCE [None]
  - ATRIAL FIBRILLATION [None]
